FAERS Safety Report 10195813 (Version 2)
Quarter: 2014Q4

REPORT INFORMATION
  Report Type: Spontaneous
  Country: US (occurrence: None)
  Receive Date: 20140522
  Receipt Date: 20141203
  Transmission Date: 20150528
  Serious: Yes (Other)
  Sender: FDA-Public Use
  Company Number: UNT-2014-000171

PATIENT
  Age: 60 Year
  Sex: Male
  Weight: 84.4 kg

DRUGS (2)
  1. REVATIO [Concomitant]
     Active Substance: SILDENAFIL CITRATE
  2. REMODULIN [Suspect]
     Active Substance: TREPROSTINIL
     Indication: COR PULMONALE CHRONIC
     Dosage: 0.064 UG/KG/MIN, CONTIUING, IV DRIP
     Route: 041
     Dates: start: 20131029, end: 20140506

REACTIONS (1)
  - Lung transplant [None]

NARRATIVE: CASE EVENT DATE: 201404
